FAERS Safety Report 14696293 (Version 1)
Quarter: 2018Q1

REPORT INFORMATION
  Report Type: Spontaneous
  Country: PT (occurrence: PT)
  Receive Date: 20180329
  Receipt Date: 20180329
  Transmission Date: 20180509
  Serious: Yes (Other)
  Sender: FDA-Public Use
  Company Number: PT-ABBVIE-18S-130-2300591-00

PATIENT
  Age: 82 Year

DRUGS (1)
  1. DEPAKINE CHRONO [Suspect]
     Active Substance: VALPROATE SODIUM
     Indication: PRODUCT USED FOR UNKNOWN INDICATION
     Route: 048
     Dates: start: 20180217, end: 20180228

REACTIONS (1)
  - Hypernatraemia [Recovered/Resolved]

NARRATIVE: CASE EVENT DATE: 20180224
